FAERS Safety Report 9626155 (Version 2)
Quarter: 2013Q4

REPORT INFORMATION
  Report Type: Spontaneous
  Country: US (occurrence: US)
  Receive Date: 20131016
  Receipt Date: 20131216
  Transmission Date: 20140711
  Serious: Yes (Other)
  Sender: FDA-Public Use
  Company Number: US-ELI_LILLY_AND_COMPANY-US201310001650

PATIENT
  Sex: Female

DRUGS (22)
  1. INSULIN HUMAN [Suspect]
     Indication: TYPE 2 DIABETES MELLITUS
     Dosage: UNK
     Route: 065
     Dates: start: 2007
  2. INSULIN HUMAN [Suspect]
     Dosage: 10 U, UNK
     Route: 065
  3. HUMULIN NPH [Suspect]
     Indication: TYPE 2 DIABETES MELLITUS
     Dosage: UNK
     Route: 065
     Dates: start: 2007
  4. HUMULIN NPH [Suspect]
     Dosage: 20 U, EACH MORNING
     Route: 065
  5. HUMULIN NPH [Suspect]
     Dosage: 80 U, EACH EVENING
     Route: 065
  6. ALDACTONE                          /00006201/ [Concomitant]
     Dosage: 50 MG, QD
  7. ALPRAZOLAM [Concomitant]
     Dosage: 1 MG, BID
  8. ASPIRIN [Concomitant]
     Dosage: 81 MG, BID
  9. ATENOLOL [Concomitant]
     Dosage: 50 MG, QD
  10. CALCITRIOL [Concomitant]
     Dosage: 0.25 UG, BID
  11. CHOLESTYRAMINE [Concomitant]
     Dosage: 1 DF, QD
  12. GABAPENTIN [Concomitant]
     Dosage: 300 MG, QID
  13. LOSARTAN [Concomitant]
     Dosage: 25 MG, QD
  14. L-THYROXINE                        /00068001/ [Concomitant]
     Dosage: 125 UG, QD
  15. METFORMIN [Concomitant]
     Dosage: 1000 MG, BID
  16. NEXIUM                             /01479302/ [Concomitant]
     Dosage: 20 MG, BID
  17. PROZAC [Concomitant]
     Dosage: 30 MG, EACH EVENING
  18. ZOCOR [Concomitant]
     Dosage: 10 MG, QD
  19. TORSEMIDE [Concomitant]
     Dosage: 10 MG, TID
  20. ZYPREXA [Concomitant]
     Dosage: 2.5 DF, UNK
  21. VITAMIN D3 [Concomitant]
     Dosage: 1000 IU, UNK
  22. LITHIUM [Concomitant]

REACTIONS (3)
  - Papillary thyroid cancer [Unknown]
  - Transient ischaemic attack [Unknown]
  - Dysphonia [Not Recovered/Not Resolved]
